FAERS Safety Report 8804891 (Version 1)
Quarter: 2012Q4

REPORT INFORMATION
  Report Type: Spontaneous
  Country: US (occurrence: None)
  Receive Date: 20120918
  Receipt Date: 20120918
  Transmission Date: 20130627
  Serious: Yes (Hospitalization)
  Sender: FDA-Public Use
  Company Number: None

PATIENT
  Age: 29 Year
  Sex: Male
  Weight: 58.97 kg

DRUGS (8)
  1. OPANA ER [Suspect]
     Indication: ARTHRITIS
     Dosage: 5 mg er and 10 mg er 3 times daily each po
     Route: 048
     Dates: start: 20120306, end: 20120914
  2. OPANA ER [Suspect]
     Indication: NECK PAIN
     Dosage: 5 mg er and 10 mg er 3 times daily each po
     Route: 048
     Dates: start: 20120306, end: 20120914
  3. OPANA ER [Suspect]
     Indication: PAIN IN HIP
     Dosage: 5 mg er and 10 mg er 3 times daily each po
     Route: 048
     Dates: start: 20120306, end: 20120914
  4. OPANA ER [Suspect]
     Indication: CHRONIC BACK PAIN
     Dosage: 5 mg er and 10 mg er 3 times daily each po
     Route: 048
     Dates: start: 20120306, end: 20120914
  5. OPANA ER [Suspect]
     Indication: ARTHRITIS
     Route: 048
     Dates: start: 20120306, end: 20120914
  6. OPANA ER [Suspect]
     Indication: NECK PAIN
     Route: 048
     Dates: start: 20120306, end: 20120914
  7. OPANA ER [Suspect]
     Indication: PAIN IN HIP
     Route: 048
     Dates: start: 20120306, end: 20120914
  8. OPANA ER [Suspect]
     Indication: CHRONIC BACK PAIN
     Route: 048
     Dates: start: 20120306, end: 20120914

REACTIONS (12)
  - Dehydration [None]
  - Product formulation issue [None]
  - Abdominal pain upper [None]
  - Abdominal pain lower [None]
  - Drug effect decreased [None]
  - Decreased appetite [None]
  - Nausea [None]
  - Product taste abnormal [None]
  - Insomnia [None]
  - Pain [None]
  - Weight decreased [None]
  - Eructation [None]
